FAERS Safety Report 9609259 (Version 2)
Quarter: 2013Q4

REPORT INFORMATION
  Report Type: Spontaneous
  Country: US (occurrence: US)
  Receive Date: 20131009
  Receipt Date: 20131009
  Transmission Date: 20140711
  Serious: No
  Sender: FDA-Public Use
  Company Number: US-PURDUE-USA-2012-0094805

PATIENT
  Age: 53 Year
  Sex: Female
  Weight: 90.7 kg

DRUGS (4)
  1. BUTRANS [Suspect]
     Indication: PAIN
     Dosage: 10 MCG, 1/WEEK
     Route: 062
     Dates: start: 20120617, end: 20121011
  2. BUTRANS [Suspect]
     Dosage: 10 MCG, 1/WEEK
     Route: 062
     Dates: start: 201207, end: 201208
  3. BUTRANS [Suspect]
     Dosage: 5 MCG, 1/WEEK
     Route: 062
     Dates: start: 201207
  4. VICODIN [Concomitant]
     Indication: PAIN
     Dosage: 1-2 TABLETS, BID
     Route: 048
     Dates: start: 2010

REACTIONS (4)
  - Application site burn [Not Recovered/Not Resolved]
  - Application site pruritus [Recovered/Resolved]
  - Application site swelling [Not Recovered/Not Resolved]
  - Application site pain [Recovered/Resolved]
